FAERS Safety Report 5932904-2 (Version None)
Quarter: 2008Q4

REPORT INFORMATION
  Report Type: 
  Country: None (occurrence: None)
  Receive Date: 20081027
  Receipt Date: 20081027
  Transmission Date: 20090506
  Serious: Yes (Other)
  Sender: FDA-Public Use
  Company Number: None

PATIENT
  Age: 61 Year
  Sex: Female
  Weight: 65.7716 kg

DRUGS (4)
  1. DOXYCYCLINE HYCLATE [Suspect]
     Indication: PERIODONTITIS
     Dosage: 1 TABLET TWICE A DAY PO
     Route: 048
     Dates: start: 20081010, end: 20081018
  2. SIMVASTATIN [Concomitant]
  3. ASPIRIN [Concomitant]
  4. CHANTIX [Concomitant]

REACTIONS (1)
  - HAEMATOCHEZIA [None]
